FAERS Safety Report 20243818 (Version 3)
Quarter: 2022Q1

REPORT INFORMATION
  Report Type: Spontaneous
  Country: US (occurrence: None)
  Receive Date: 20211228
  Receipt Date: 20220307
  Transmission Date: 20220423
  Serious: Yes (Other)
  Sender: FDA-Public Use
  Company Number: US-FARMAPROD-202112-2354

PATIENT

DRUGS (6)
  1. OXERVATE [Suspect]
     Active Substance: CENEGERMIN-BKBJ
     Indication: Neurotrophic keratopathy
     Route: 047
     Dates: start: 20201202, end: 202101
  2. OXERVATE [Suspect]
     Active Substance: CENEGERMIN-BKBJ
     Route: 047
     Dates: start: 202102, end: 20210325
  3. PRED FORTE [Concomitant]
     Active Substance: PREDNISOLONE ACETATE
  4. TRAVATAN Z [Concomitant]
     Active Substance: TRAVOPROST
  5. RESTASIS [Concomitant]
     Active Substance: CYCLOSPORINE
  6. LACRILUBE [Concomitant]

REACTIONS (1)
  - Hypopyon [Recovered/Resolved]

NARRATIVE: CASE EVENT DATE: 20201218
